FAERS Safety Report 20558358 (Version 1)
Quarter: 2022Q1

REPORT INFORMATION
  Report Type: Spontaneous
  Country: US (occurrence: US)
  Receive Date: 20220307
  Receipt Date: 20220307
  Transmission Date: 20220423
  Serious: No
  Sender: FDA-Public Use
  Company Number: US-STRIDES ARCOLAB LIMITED-2021SP030327

PATIENT
  Age: 27 Year
  Sex: Female

DRUGS (2)
  1. TENOFOVIR DISOPROXIL FUMARATE [Suspect]
     Active Substance: TENOFOVIR DISOPROXIL FUMARATE
     Indication: Product used for unknown indication
     Dosage: 300 UNK, SINGLE COURSE AT A TOTAL DAILY DOSAGE OF 300 (UNIT UNSPECIFIED)
     Route: 048
  2. ENTECAVIR [Suspect]
     Active Substance: ENTECAVIR
     Indication: Product used for unknown indication
     Dosage: 0.5 UNK, SINGLE COURSE AT A TOTAL DAILY DOSAGE OF 0.5 (UNIT UNSPECIFIED)
     Route: 048

REACTIONS (1)
  - Maternal exposure during pregnancy [Unknown]
